FAERS Safety Report 5070045-X (Version None)
Quarter: 2006Q3

REPORT INFORMATION
  Report Type: 
  Country: None (occurrence: None)
  Receive Date: 20060731
  Receipt Date: 20060717
  Transmission Date: 20061208
  Serious: Yes (Other)
  Sender: FDA-Public Use
  Company Number: 2006086432

PATIENT
  Sex: Male

DRUGS (8)
  1. CYTOTEC [Suspect]
     Indication: DYSPEPSIA
     Dosage: ORAL
     Route: 048
     Dates: start: 19910101, end: 20050301
  2. PANTOPRAZOLE SODIUM [Suspect]
     Indication: GASTRIC ULCER
     Dosage: ORAL
     Route: 048
  3. OMEPRAZOLE [Suspect]
     Indication: GASTRIC ULCER
     Dosage: ORAL
     Route: 048
  4. NEXIUM [Suspect]
     Indication: GASTRIC ULCER
     Dosage: ORAL
     Route: 048
  5. ALL OTHER THERAPEUTIC PRODUCTS (ALL OTHER THERAPEUTIC PRODUCTS) [Suspect]
     Indication: GASTRIC ULCER
  6. AMITRIPTYLINE (AMITRIPTYLINE) [Concomitant]
  7. ANTIACID (BISMUTH SUBNITRATE, CALCIUM CARBONATE, PHENOBARBITAL, SODIUM [Concomitant]
  8. ALGELDRATE (ALGELDRATE) [Concomitant]

REACTIONS (5)
  - ABDOMINAL PAIN UPPER [None]
  - ANXIETY [None]
  - DRUG INEFFECTIVE [None]
  - DYSPEPSIA [None]
  - GASTROINTESTINAL DISORDER [None]
